FAERS Safety Report 26207024 (Version 1)
Quarter: 2025Q4

REPORT INFORMATION
  Report Type: Spontaneous
  Country: EU (occurrence: EU)
  Receive Date: 20251229
  Receipt Date: 20251229
  Transmission Date: 20260117
  Serious: Yes (Hospitalization)
  Sender: ACCORD
  Company Number: None

PATIENT
  Age: 80 Year
  Sex: Female
  Weight: 50.7 kg

DRUGS (9)
  1. GLIMEPIRIDE [Suspect]
     Active Substance: GLIMEPIRIDE
     Indication: Diabetes mellitus
     Dates: end: 20251022
  2. REMDESIVIR [Suspect]
     Active Substance: REMDESIVIR
     Indication: COVID-19 pneumonia
     Dates: start: 20251017, end: 20251019
  3. RILUZOLE [Suspect]
     Active Substance: RILUZOLE
     Indication: Amyotrophic lateral sclerosis
     Dosage: 50MG 2/D, STRENGTH: 50 MG FILM-COATED TABLETS
     Dates: start: 20250904, end: 20251022
  4. PERINDOPRIL [Concomitant]
     Active Substance: PERINDOPRIL
  5. METFORMIN [Concomitant]
     Active Substance: METFORMIN HYDROCHLORIDE
  6. ESCITALOPRAM [Concomitant]
     Active Substance: ESCITALOPRAM OXALATE
  7. ALPHA-TOCOPHEROL [Concomitant]
     Active Substance: .ALPHA.-TOCOPHEROL
  8. LOVENOX [Concomitant]
     Active Substance: ENOXAPARIN SODIUM
  9. CIMETIDINE [Concomitant]
     Active Substance: CIMETIDINE

REACTIONS (1)
  - Hepatic cytolysis [Recovered/Resolved]

NARRATIVE: CASE EVENT DATE: 20251022
